FAERS Safety Report 4870980-9 (Version None)
Quarter: 2005Q4

REPORT INFORMATION
  Report Type: 
  Country: None (occurrence: None)
  Receive Date: 20051229
  Receipt Date: 20051212
  Transmission Date: 20060501
  Serious: Yes (Hospitalization, Other)
  Sender: FDA-Public Use
  Company Number: EWC050644687

PATIENT
  Age: 68 Year
  Sex: Female

DRUGS (5)
  1. FORTEO [Suspect]
     Indication: OSTEOPOROSIS
     Dosage: 20 UG, DAILY (1/D)
     Dates: start: 20041208, end: 20050612
  2. FORTEO [Concomitant]
  3. ALVEDON (PARACETAMOL) [Concomitant]
  4. PANTOLOC ^BYK^ (PANTOPRAZOLE SODIUM) [Concomitant]
  5. OXYCONTIN [Concomitant]

REACTIONS (4)
  - ALANINE AMINOTRANSFERASE INCREASED [None]
  - BLOOD ALBUMIN DECREASED [None]
  - BLOOD CREATININE INCREASED [None]
  - BREAST CANCER FEMALE [None]
